FAERS Safety Report 14421030 (Version 2)
Quarter: 2018Q1

REPORT INFORMATION
  Report Type: Spontaneous
  Country: EG (occurrence: EG)
  Receive Date: 20180122
  Receipt Date: 20180130
  Transmission Date: 20180509
  Serious: Yes (Death, Life-Threatening, Other)
  Sender: FDA-Public Use
  Company Number: EG-BAUSCH-BL-2018-001518

PATIENT
  Age: 59 Year
  Sex: Male

DRUGS (3)
  1. CISPLATIN. [Suspect]
     Active Substance: CISPLATIN
     Indication: ADENOID CYSTIC CARCINOMA
     Dosage: ON DAY 1
     Route: 065
  2. DOCETAXEL. [Suspect]
     Active Substance: DOCETAXEL
     Indication: ADENOID CYSTIC CARCINOMA
     Dosage: ON DAY 1
     Route: 065
  3. FLUOROURACIL. [Suspect]
     Active Substance: FLUOROURACIL
     Indication: ADENOID CYSTIC CARCINOMA
     Dosage: ON DAY 1 TO 4 FOR 2 CYCLES
     Route: 065

REACTIONS (5)
  - Neutropenia [Fatal]
  - Diarrhoea [Fatal]
  - Off label use [Unknown]
  - Mucosal inflammation [Fatal]
  - Drug ineffective [Unknown]
